FAERS Safety Report 26060884 (Version 1)
Quarter: 2025Q4

REPORT INFORMATION
  Report Type: Spontaneous
  Country: US (occurrence: US)
  Receive Date: 20251118
  Receipt Date: 20251118
  Transmission Date: 20260117
  Serious: No
  Sender: ALVOGEN
  Company Number: US-ALVOGEN-2025098823

PATIENT
  Sex: Female

DRUGS (1)
  1. BONSITY [Suspect]
     Active Substance: TERIPARATIDE
     Indication: Osteoporosis
     Dosage: EXPIRATION DATE: SEP-2026?THIRD PEN, TOOK 7 OR 8 INJECTIONS?RECEIVED PEN ON 20-SEP-2025
     Dates: start: 202509

REACTIONS (3)
  - Device malfunction [Unknown]
  - Device operational issue [Unknown]
  - No adverse event [Unknown]

NARRATIVE: CASE EVENT DATE: 20250929
